FAERS Safety Report 18222360 (Version 2)
Quarter: 2020Q4

REPORT INFORMATION
  Report Type: Spontaneous
  Country: US (occurrence: US)
  Receive Date: 20200902
  Receipt Date: 20201022
  Transmission Date: 20210113
  Serious: No
  Sender: FDA-Public Use
  Company Number: US-SA-2020SA234423

PATIENT

DRUGS (4)
  1. DUPIXENT [Suspect]
     Active Substance: DUPILUMAB
     Indication: DERMATITIS ATOPIC
     Dosage: 2 DF
     Dates: start: 202008
  2. BETAMETHASONE VALERATE. [Concomitant]
     Active Substance: BETAMETHASONE VALERATE
  3. TRIAMCINOLONE ACETONIDE. [Concomitant]
     Active Substance: TRIAMCINOLONE ACETONIDE
  4. DUPIXENT [Suspect]
     Active Substance: DUPILUMAB
     Indication: DERMATITIS ALLERGIC
     Dosage: 300 MG, QOW
     Route: 058
     Dates: start: 2017, end: 20200701

REACTIONS (8)
  - Sleep disorder [Unknown]
  - Eczema [Unknown]
  - Extra dose administered [Unknown]
  - Dry skin [Unknown]
  - Product dose omission issue [Unknown]
  - Pruritus [Unknown]
  - Skin weeping [Unknown]
  - Pustule [Unknown]

NARRATIVE: CASE EVENT DATE: 2020
